FAERS Safety Report 4566507-1 (Version None)
Quarter: 2005Q1

REPORT INFORMATION
  Report Type: 
  Country: None (occurrence: None)
  Receive Date: 20050126
  Receipt Date: 20050126
  Transmission Date: 20050727
  Serious: Yes (Other)
  Sender: FDA-Public Use
  Company Number: None

PATIENT
  Age: 18 Year
  Sex: Female
  Weight: 49.8957 kg

DRUGS (1)
  1. ANZEMET [Suspect]
     Indication: EYE OPERATION

REACTIONS (2)
  - HEART RATE INCREASED [None]
  - MYOCARDIAL INFARCTION [None]
